FAERS Safety Report 20347309 (Version 3)
Quarter: 2022Q1

REPORT INFORMATION
  Report Type: Spontaneous
  Country: US (occurrence: US)
  Receive Date: 20220118
  Receipt Date: 20220127
  Transmission Date: 20220423
  Serious: Yes (Death)
  Sender: FDA-Public Use
  Company Number: US-NOVARTISTESTPH-NVSC2022US010435

PATIENT
  Age: 61 Year
  Sex: Male

DRUGS (2)
  1. RANITIDINE [Suspect]
     Active Substance: RANITIDINE
     Indication: Gastric cancer
     Dosage: UNK UNK, QD
     Route: 048
     Dates: start: 201704, end: 201911
  2. RANITIDINE [Suspect]
     Active Substance: RANITIDINE
     Indication: Gastric cancer
     Dosage: UNK UNK, QD
     Route: 048
     Dates: start: 201704, end: 201911

REACTIONS (3)
  - Colorectal cancer [Fatal]
  - Hepatic cancer [Fatal]
  - Product use in unapproved indication [Unknown]

NARRATIVE: CASE EVENT DATE: 20191001
